FAERS Safety Report 10136663 (Version 1)
Quarter: 2014Q2

REPORT INFORMATION
  Report Type: Spontaneous
  Country: US (occurrence: None)
  Receive Date: 20140428
  Receipt Date: 20140428
  Transmission Date: 20141212
  Serious: Yes (Other)
  Sender: FDA-Public Use
  Company Number: None

PATIENT
  Age: 55 Year
  Sex: Male

DRUGS (1)
  1. ADVATE [Suspect]
     Indication: FACTOR VIII DEFICIENCY
     Dosage: 4000U-5000U, INJECTABLE, 3-4 TIMES WEEK, INTRAVENOUS BOLUS 040
     Route: 040
     Dates: start: 20130524

REACTIONS (4)
  - Tremor [None]
  - Tremor [None]
  - Pyrexia [None]
  - Dehydration [None]
